FAERS Safety Report 4512355-8 (Version None)
Quarter: 2004Q4

REPORT INFORMATION
  Report Type: 
  Country: None (occurrence: None)
  Receive Date: 20041123
  Receipt Date: 20041115
  Transmission Date: 20050328
  Serious: Yes (Death)
  Sender: FDA-Public Use
  Company Number: 2004AP05470

PATIENT
  Age: 25 Year
  Sex: Female
  Weight: 35 kg

DRUGS (11)
  1. SEROQUEL [Suspect]
     Indication: SCHIZOPHRENIA
     Dosage: 100 MG TID PO
     Route: 048
     Dates: start: 20040916, end: 20040924
  2. HORIZON [Suspect]
     Indication: SCHIZOPHRENIA
     Dosage: 5 MG QID PO
     Route: 048
     Dates: start: 20040724, end: 20040924
  3. SILECE [Suspect]
     Indication: SCHIZOPHRENIA
     Dosage: 2 MG BID PO
     Route: 048
     Dates: end: 20040924
  4. VITAMIN A [Suspect]
     Indication: SCHIZOPHRENIA
     Dates: end: 20040924
  5. DOGMATYL [Suspect]
     Indication: SCHIZOPHRENIA
     Dosage: 100 MG TID PO
     Route: 048
     Dates: start: 20040724, end: 20040924
  6. CHLORPROMAZINE [Concomitant]
  7. IMPROMEN [Concomitant]
  8. PROMETHAZINE HCL [Concomitant]
  9. BICAMOL [Concomitant]
  10. GLYCYRON [Concomitant]
  11. DASEN [Concomitant]

REACTIONS (17)
  - AMMONIA INCREASED [None]
  - APHAGIA [None]
  - BLOOD PRESSURE DECREASED [None]
  - BRADYCARDIA [None]
  - DISEASE RECURRENCE [None]
  - HEPATITIS ACUTE [None]
  - HYPERCAPNIA [None]
  - HYPOXIA [None]
  - ILL-DEFINED DISORDER [None]
  - IMMUNOSUPPRESSION [None]
  - MULTI-ORGAN FAILURE [None]
  - PNEUMONIA BACTERIAL [None]
  - RENAL IMPAIRMENT [None]
  - SEPSIS [None]
  - SPUTUM RETENTION [None]
  - STUPOR [None]
  - VIRAL INFECTION [None]
